FAERS Safety Report 8797878 (Version 1)
Quarter: 2012Q4

REPORT INFORMATION
  Report Type: Spontaneous
  Country: US (occurrence: None)
  Receive Date: 20120917
  Receipt Date: 20120917
  Transmission Date: 20130627
  Serious: Yes (Hospitalization)
  Sender: FDA-Public Use
  Company Number: None

PATIENT
  Age: 54 Year
  Sex: Male
  Weight: 96.16 kg

DRUGS (2)
  1. DASAFINIB [Suspect]
     Indication: PANCREAS CANCER
     Route: 048
     Dates: start: 20120321
  2. GEMCITABINE [Suspect]
     Dates: start: 20120321, end: 20120829

REACTIONS (4)
  - Nausea [None]
  - Vomiting [None]
  - Diarrhoea [None]
  - Colitis [None]
